FAERS Safety Report 17507658 (Version 2)
Quarter: 2020Q2

REPORT INFORMATION
  Report Type: Spontaneous
  Country: JP (occurrence: JP)
  Receive Date: 20200306
  Receipt Date: 20200407
  Transmission Date: 20200713
  Serious: Yes (Death, Other)
  Sender: FDA-Public Use
  Company Number: JP-009507513-2003JPN000140J

PATIENT
  Age: 84 Year
  Sex: Male
  Weight: 75 kg

DRUGS (14)
  1. CELECOX [Concomitant]
     Active Substance: CELECOXIB
     Dosage: 100 MILLIGRAM, BID, AFTER BREAKFAST AND DINNER
     Route: 048
  2. SENNOSIDE [Concomitant]
     Active Substance: SENNOSIDES
     Dosage: 24 MILLIGRAM, QD, BEFORE SLEEP
     Route: 048
  3. POTASSIUM CHLORIDE. [Concomitant]
     Active Substance: POTASSIUM CHLORIDE
     Dosage: 0.5 GRAM, QID, AFTER EACH MEAL AND BEFORE SLEEP
     Route: 065
  4. MOHRUS TAPE [Concomitant]
     Active Substance: KETOPROFEN
     Dosage: 80 MILLIGRAM, QD, PASTE
  5. FUROSEMIDE. [Concomitant]
     Active Substance: FUROSEMIDE
     Dosage: 40 MILLIGRAM, BID, AFTER BREAKFAST AND DINNER
     Route: 048
  6. REBAMIPIDE [Concomitant]
     Active Substance: REBAMIPIDE
     Dosage: 100 MILLIGRAM, BID, AFTER BREAKFAST AND DINNER
     Route: 048
  7. SUMILU STICK [Concomitant]
     Dosage: 1 BOTTLE, QD, APPLICATION
  8. NIFEDIPINE CR [Concomitant]
     Active Substance: NIFEDIPINE
     Dosage: 40 MILLIGRAM, BID, AFTER BREAKFAST AND DINNER
     Route: 048
  9. TSUMURA DAIKENCHUTO EXTRACT GRANULES FOR ETHICAL USE [Concomitant]
     Active Substance: HERBALS
     Dosage: 1 PACK DOSAGE FORM, TID, BEFORE EACH MEAL
     Route: 048
  10. RABEPRAZOLE NA [Concomitant]
     Active Substance: RABEPRAZOLE SODIUM
     Dosage: 10 MILLIGRAM, QD, AFTER DINNER
     Route: 048
  11. KEYTRUDA [Suspect]
     Active Substance: PEMBROLIZUMAB
     Indication: TRANSITIONAL CELL CARCINOMA
     Dosage: 200 MILLIGRAM, Q3W
     Route: 041
     Dates: start: 20191218, end: 20200108
  12. CITRIC ACID [Concomitant]
     Active Substance: CITRIC ACID MONOHYDRATE
     Dosage: 50 MILLIGRAM, QD, BEFORE SLEEP
     Route: 048
  13. ETIZOLAM [Concomitant]
     Active Substance: ETIZOLAM
     Dosage: 0.5 MILLIGRAM, QD, BEFORE SLEEP
     Route: 048
  14. BROTIZOLAM OD [Concomitant]
     Dosage: 0.25 MILLIGRAM, QD, BEFORE SLEEP
     Route: 048

REACTIONS (1)
  - Interstitial lung disease [Fatal]

NARRATIVE: CASE EVENT DATE: 20200111
